FAERS Safety Report 24704907 (Version 1)
Quarter: 2024Q4

REPORT INFORMATION
  Report Type: Spontaneous
  Country: FR (occurrence: FR)
  Receive Date: 20241206
  Receipt Date: 20241206
  Transmission Date: 20250115
  Serious: Yes (Hospitalization, Other)
  Sender: AUROBINDO
  Company Number: FR-AFSSAPS-CN2024001091

PATIENT
  Age: 66 Year
  Sex: Male
  Weight: 89 kg

DRUGS (18)
  1. CARBOPLATIN [Suspect]
     Active Substance: CARBOPLATIN
     Indication: Lung adenocarcinoma
     Dosage: 550 MILLIGRAM, ONCE A DAY (C1J1 AUC5)
     Route: 042
     Dates: start: 20240711, end: 20240711
  2. CARBOPLATIN [Suspect]
     Active Substance: CARBOPLATIN
     Dosage: 550 MILLIGRAM, ONCE A DAY (C2J1 AUC5)
     Route: 042
     Dates: start: 20240801, end: 20240801
  3. CARBOPLATIN [Suspect]
     Active Substance: CARBOPLATIN
     Dosage: 570 MILLIGRAM, ONCE A DAY (C3J1 AUC5)
     Route: 042
     Dates: start: 20240822, end: 20240822
  4. CARBOPLATIN [Suspect]
     Active Substance: CARBOPLATIN
     Dosage: 495 MILLIGRAM (AUC5 C1 AFTER INTERCURE)
     Route: 042
     Dates: start: 20241017, end: 20241017
  5. PEMETREXED [Suspect]
     Active Substance: PEMETREXED
     Indication: Lung adenocarcinoma
     Dosage: 1000 MILLIGRAM, ONCE A DAY (500 MG/M?)
     Route: 042
     Dates: start: 20240711, end: 20240711
  6. PEMETREXED [Suspect]
     Active Substance: PEMETREXED
     Dosage: 1000 MILLIGRAM, ONCE A DAY (500 MG/M?)
     Route: 042
     Dates: start: 20240801, end: 20240801
  7. PEMETREXED [Suspect]
     Active Substance: PEMETREXED
     Dosage: 1000 MILLIGRAM, ONCE A DAY (500 MG/M?)
     Route: 042
     Dates: start: 20240822, end: 20240822
  8. PEMETREXED [Suspect]
     Active Substance: PEMETREXED
     Dosage: 1000 MILLIGRAM (500 MG/M? AFTER INTERCURE)
     Route: 042
     Dates: start: 20241017, end: 20241017
  9. CEFTRIAXONE [Concomitant]
     Active Substance: CEFTRIAXONE
     Indication: Febrile neutropenia
     Dosage: 1 GRAM, ONCE A DAY (1-0-0)
     Route: 042
     Dates: start: 20241104
  10. FOLIC ACID [Concomitant]
     Active Substance: FOLIC ACID
     Indication: Product used for unknown indication
     Dosage: 0.4 MILLIGRAM, ONCE A DAY
     Route: 048
     Dates: start: 20240912
  11. LOVENOX [Concomitant]
     Active Substance: ENOXAPARIN SODIUM
     Indication: Thrombosis prophylaxis
     Dosage: 4000 INTERNATIONAL UNIT, ONCE A DAY (0-0-1)
     Route: 058
     Dates: start: 20241103
  12. POLYETHYLENE GLYCOL 4000 [Concomitant]
     Active Substance: POLYETHYLENE GLYCOL 4000
     Indication: Constipation
     Dosage: 20 GRAM, ONCE A DAY (IF NEEDED)
     Route: 048
     Dates: start: 20241102
  13. NEFOPAM HYDROCHLORIDE [Concomitant]
     Active Substance: NEFOPAM HYDROCHLORIDE
     Indication: Analgesic intervention supportive therapy
     Dosage: 20 MILLIGRAM, ONCE A DAY (IF NECESSARY, MAX 80MG/DAY)
     Route: 048
     Dates: start: 20241102
  14. ONDANSETRON [Concomitant]
     Active Substance: ONDANSETRON
     Indication: Chemotherapy side effect prophylaxis
     Dosage: 8 MILLIGRAM, 1 X CYCLICAL (IN PREMEDICATION FOR CHEMOTHERAPY)
     Route: 048
  15. PIPERACILLIN SODIUM\TAZOBACTAM SODIUM [Concomitant]
     Active Substance: PIPERACILLIN SODIUM\TAZOBACTAM SODIUM
     Indication: Febrile neutropenia
     Dosage: 4 GRAM, FOUR TIMES/DAY (EVERY 6 HOURS), 1-1-1-1
     Route: 042
     Dates: start: 20241102, end: 20241103
  16. ACETAMINOPHEN [Concomitant]
     Active Substance: ACETAMINOPHEN
     Indication: Product used for unknown indication
     Dosage: SELF-MEDICATION
     Route: 048
     Dates: start: 20241102, end: 20241102
  17. PREDNISONE [Concomitant]
     Active Substance: PREDNISONE
     Indication: Chemotherapy side effect prophylaxis
     Dosage: 40 MILLIGRAM, 1 X CYCLICAL (THE DAY BEFORE AND THE DAY OF THE PEMETREXED TREATMENT)
     Route: 048
     Dates: start: 20240912
  18. CALCIUM PHOSPHATE, DIBASIC, ANHYDROUS\MAGNESIUM GLYCEROPHOSPHATE\PHOSP [Concomitant]
     Active Substance: CALCIUM PHOSPHATE, DIBASIC, ANHYDROUS\MAGNESIUM GLYCEROPHOSPHATE\PHOSPHORIC ACID\SODIUM PHOSPHATE, D
     Indication: Hypophosphataemia
     Dosage: 472.8 MILLIGRAM (60 DROPS 1-0-1)
     Route: 048
     Dates: start: 20241102

REACTIONS (1)
  - Hepatic cytolysis [Recovering/Resolving]

NARRATIVE: CASE EVENT DATE: 20241102
